FAERS Safety Report 15781476 (Version 1)
Quarter: 2019Q1

REPORT INFORMATION
  Report Type: Report from Study
  Country: CN (occurrence: CN)
  Receive Date: 20190102
  Receipt Date: 20190102
  Transmission Date: 20190417
  Serious: Yes (Other)
  Sender: FDA-Public Use
  Company Number: CN-ROCHE-2238809

PATIENT

DRUGS (1)
  1. CAPECITABINE. [Suspect]
     Active Substance: CAPECITABINE
     Indication: RECTAL CANCER RECURRENT
     Dosage: FOR 2 CONSECUTIVE WEEKS FOLLOWED BY 1 WEEK OF DISCONTINUATION
     Route: 048

REACTIONS (1)
  - Intestinal obstruction [Recovering/Resolving]
